FAERS Safety Report 7263113-5 (Version None)
Quarter: 2011Q1

REPORT INFORMATION
  Report Type: 
  Country: None (occurrence: None)
  Receive Date: 20110130
  Receipt Date: 20101012
  Transmission Date: 20110831
  Serious: No
  Sender: FDA-Public Use
  Company Number: US-ABBOTT-10P-163-0677614-00

PATIENT
  Age: 55 Year
  Sex: Male

DRUGS (4)
  1. CLOVAX SPRAY [Concomitant]
     Indication: PRODUCT USED FOR UNKNOWN INDICATION
     Dosage: MORNING AND NIGHT
  2. HUMIRA [Suspect]
     Indication: PSORIASIS
     Dates: start: 20100915
  3. OINTMENT [Concomitant]
     Indication: PRODUCT USED FOR UNKNOWN INDICATION
     Dosage: VERTICAL - TOPICAL
     Route: 061
  4. SPRAY VERSAFOAM [Concomitant]
     Indication: PRODUCT USED FOR UNKNOWN INDICATION

REACTIONS (1)
  - DRUG INEFFECTIVE [None]
